FAERS Safety Report 6316563-5 (Version None)
Quarter: 2009Q3

REPORT INFORMATION
  Report Type: 
  Country: None (occurrence: None)
  Receive Date: 20090820
  Receipt Date: 20090810
  Transmission Date: 20100115
  Serious: Yes (Life-Threatening, Hospitalization, Disabling, Other)
  Sender: FDA-Public Use
  Company Number: PHHY2009JP33672

PATIENT
  Age: 59 Year
  Sex: Female
  Weight: 44 kg

DRUGS (12)
  1. ZOMETA [Suspect]
     Indication: METASTASES TO BONE
     Dosage: 4 MG, UNK
     Route: 042
     Dates: start: 20090212, end: 20090424
  2. SUTENT [Suspect]
     Indication: RENAL CELL CARCINOMA
     Dosage: 50 MG, QD
     Route: 048
     Dates: start: 20090216, end: 20090303
  3. TAKEPRON [Concomitant]
  4. MAG-LAX [Concomitant]
  5. THYRADIN S [Concomitant]
  6. VOLTAREN [Concomitant]
  7. CYTOTEC [Concomitant]
  8. OXINORM [Concomitant]
  9. DIOVANE [Concomitant]
  10. GABAPENTIN [Concomitant]
  11. POLAPREZINC [Concomitant]
  12. OXYCONTIN [Concomitant]

REACTIONS (26)
  - ABDOMINAL PAIN [None]
  - BIOPSY INTESTINE [None]
  - BLOOD PRESSURE DECREASED [None]
  - CITROBACTER INFECTION [None]
  - DEPRESSED LEVEL OF CONSCIOUSNESS [None]
  - DISSEMINATED INTRAVASCULAR COAGULATION [None]
  - DIVERTICULITIS [None]
  - ENTEROCOCCAL INFECTION [None]
  - EPISTAXIS [None]
  - FLUSHING [None]
  - GASTROINTESTINAL HAEMORRHAGE [None]
  - HAEMORRHAGE SUBCUTANEOUS [None]
  - HYPOCALCAEMIA [None]
  - INTESTINAL PERFORATION [None]
  - INTESTINAL STOMA [None]
  - LAPAROTOMY [None]
  - MELAENA [None]
  - NAUSEA [None]
  - PLATELET COUNT DECREASED [None]
  - PLEURAL EFFUSION [None]
  - PNEUMONIA [None]
  - PURPURA [None]
  - PYREXIA [None]
  - RASH [None]
  - SKIN INDURATION [None]
  - URINE OUTPUT DECREASED [None]
